FAERS Safety Report 8810654 (Version 1)
Quarter: 2012Q4

REPORT INFORMATION
  Report Type: Spontaneous
  Country: US (occurrence: None)
  Receive Date: 20120920
  Receipt Date: 20120920
  Transmission Date: 20130627
  Serious: Yes (Hospitalization)
  Sender: FDA-Public Use
  Company Number: 54973 AE#1025

PATIENT
  Age: 17 Year
  Sex: Female

DRUGS (2)
  1. HYLAND^S NIGHTTIME COLD ^N COUGH 4 KIDS LIQUID [Suspect]
     Indication: COLD SYMPTOMS
     Dosage: 3 teaspoons once
  2. HYLAND^S NIGHTTIME COLD ^N COUGH 4 KIDS LIQUID [Suspect]
     Indication: COUGH
     Dosage: 3 teaspoons once

REACTIONS (2)
  - Abdominal pain upper [None]
  - Gastric disorder [None]
